FAERS Safety Report 6088702-5 (Version None)
Quarter: 2009Q1

REPORT INFORMATION
  Report Type: 
  Country: None (occurrence: None)
  Receive Date: 20090224
  Receipt Date: 20090220
  Transmission Date: 20090719
  Serious: Yes (Other)
  Sender: FDA-Public Use
  Company Number: NZ-ASTRAZENECA-2009AP01318

PATIENT
  Age: 19119 Day
  Sex: Female

DRUGS (1)
  1. ARIMIDEX [Suspect]
     Indication: PROPHYLAXIS
     Route: 048

REACTIONS (1)
  - UTERINE POLYP [None]
